FAERS Safety Report 5818375-5 (Version None)
Quarter: 2008Q3

REPORT INFORMATION
  Report Type: 
  Country: None (occurrence: None)
  Receive Date: 20080718
  Receipt Date: 20080710
  Transmission Date: 20090109
  Serious: Yes (Hospitalization)
  Sender: FDA-Public Use
  Company Number: 062-21880-08021208

PATIENT
  Age: 80 Year
  Sex: Male
  Weight: 76 kg

DRUGS (6)
  1. REVLIMID [Suspect]
     Indication: MULTIPLE MYELOMA
     Dosage: 55 MG,  ORAL
     Route: 048
     Dates: start: 20080121, end: 20080210
  2. OFLOXACIN [Concomitant]
  3. AMPHOTERICIN B [Concomitant]
  4. ECURAL (MOMETASONE FUROATE) (CREAM) [Concomitant]
  5. CETIRIZIN (CETIRIZINE HYDROCHLORIDE) [Concomitant]
  6. ARANESP [Concomitant]

REACTIONS (5)
  - CHOLESTASIS [None]
  - HAEMATOCRIT DECREASED [None]
  - HAEMOGLOBIN DECREASED [None]
  - HEPATITIS B [None]
  - PLATELET COUNT DECREASED [None]
